FAERS Safety Report 14568781 (Version 1)
Quarter: 2018Q1

REPORT INFORMATION
  Report Type: Spontaneous
  Country: GB (occurrence: GB)
  Receive Date: 20180223
  Receipt Date: 20180223
  Transmission Date: 20180509
  Serious: Yes (Hospitalization)
  Sender: FDA-Public Use
  Company Number: GB-PERRIGO-18GB002019

PATIENT
  Age: 34 Year
  Sex: Female

DRUGS (2)
  1. NAPROXEN. [Suspect]
     Active Substance: NAPROXEN
     Indication: FIBROMYALGIA
     Dosage: UNK
  2. METFORMIN HYDROCHLORIDE 100MG/ML PL00427/0139 [Suspect]
     Active Substance: METFORMIN HYDROCHLORIDE

REACTIONS (6)
  - Wrong drug administered [Unknown]
  - Nausea [Unknown]
  - Product packaging issue [Unknown]
  - Vomiting [Unknown]
  - Malaise [Unknown]
  - Drug dispensing error [Unknown]
